FAERS Safety Report 10351754 (Version 1)
Quarter: 2014Q3

REPORT INFORMATION
  Report Type: Other
  Country: GB (occurrence: GB)
  Receive Date: 20140730
  Receipt Date: 20140730
  Transmission Date: 20150326
  Serious: Yes (Hospitalization, Other)
  Sender: FDA-Public Use
  Company Number: GB-MYLAN-2014S1017130

PATIENT

DRUGS (4)
  1. CLONAZEPAM. [Suspect]
     Active Substance: CLONAZEPAM
     Indication: BIPOLAR DISORDER
     Dosage: 2 MG,UNK
     Route: 048
  2. RISPERIDONE. [Suspect]
     Active Substance: RISPERIDONE
     Dosage: 5 MG,UNK
  3. ABILIFY [Suspect]
     Active Substance: ARIPIPRAZOLE
     Dosage: 5 MG,UNK
  4. SODIUM VALPROATE [Suspect]
     Active Substance: VALPROATE SODIUM
     Dosage: 1.4 G,UNK

REACTIONS (10)
  - Mania [Not Recovered/Not Resolved]
  - Crying [None]
  - Delusion [Unknown]
  - Muscle spasms [Unknown]
  - Off label use [Unknown]
  - Anger [None]
  - Hallucination [Unknown]
  - Psychotic disorder [Not Recovered/Not Resolved]
  - Drug withdrawal syndrome [Unknown]
  - Palpitations [Unknown]
